FAERS Safety Report 4727515-0 (Version None)
Quarter: 2005Q3

REPORT INFORMATION
  Report Type: 
  Country: None (occurrence: None)
  Receive Date: 20050727
  Receipt Date: 20050727
  Transmission Date: 20060218
  Serious: No
  Sender: FDA-Public Use
  Company Number: None

PATIENT
  Sex: Male

DRUGS (20)
  1. AMLODIPINE [Suspect]
     Indication: CEREBROVASCULAR ACCIDENT
     Dosage: 5 MG  DAILY  ORAL;  10 MG  DAILY  ORAL
     Route: 048
     Dates: start: 20041209, end: 20050105
  2. AMLODIPINE [Suspect]
     Indication: DIABETES MELLITUS
     Dosage: 5 MG  DAILY  ORAL;  10 MG  DAILY  ORAL
     Route: 048
     Dates: start: 20041209, end: 20050105
  3. AMLODIPINE [Suspect]
     Indication: HEMIPARESIS
     Dosage: 5 MG  DAILY  ORAL;  10 MG  DAILY  ORAL
     Route: 048
     Dates: start: 20041209, end: 20050105
  4. AMLODIPINE [Suspect]
     Indication: HYPERTENSION
     Dosage: 5 MG  DAILY  ORAL;  10 MG  DAILY  ORAL
     Route: 048
     Dates: start: 20041209, end: 20050105
  5. AMLODIPINE [Suspect]
     Indication: CEREBROVASCULAR ACCIDENT
     Dosage: 5 MG  DAILY  ORAL;  10 MG  DAILY  ORAL
     Route: 048
     Dates: start: 20050105, end: 20050331
  6. AMLODIPINE [Suspect]
     Indication: DIABETES MELLITUS
     Dosage: 5 MG  DAILY  ORAL;  10 MG  DAILY  ORAL
     Route: 048
     Dates: start: 20050105, end: 20050331
  7. AMLODIPINE [Suspect]
     Indication: HEMIPARESIS
     Dosage: 5 MG  DAILY  ORAL;  10 MG  DAILY  ORAL
     Route: 048
     Dates: start: 20050105, end: 20050331
  8. AMLODIPINE [Suspect]
     Indication: HYPERTENSION
     Dosage: 5 MG  DAILY  ORAL;  10 MG  DAILY  ORAL
     Route: 048
     Dates: start: 20050105, end: 20050331
  9. DOCUSATE SODIUM [Concomitant]
  10. ACETAMINOPHEN, TEMAZEPAM [Concomitant]
  11. BENAZEPRIL HCL [Concomitant]
  12. METOPROLOL [Concomitant]
  13. CLONIDINE [Concomitant]
  14. ESCITALOPRAM OXALATE [Concomitant]
  15. GABAPENTIN [Concomitant]
  16. TERAZOSIN [Concomitant]
  17. METFORMIN [Concomitant]
  18. FESO4 [Concomitant]
  19. GLIPIZIDE [Concomitant]
  20. PIOGLITAZONE HCL [Concomitant]

REACTIONS (2)
  - GINGIVAL BLEEDING [None]
  - GINGIVAL HYPERPLASIA [None]
